FAERS Safety Report 4641036-5 (Version None)
Quarter: 2005Q2

REPORT INFORMATION
  Report Type: 
  Country: None (occurrence: None)
  Receive Date: 20050421
  Receipt Date: 20050216
  Transmission Date: 20051028
  Serious: No
  Sender: FDA-Public Use
  Company Number: US-BRISTOL-MYERS SQUIBB COMPANY-12867057

PATIENT
  Sex: Female

DRUGS (2)
  1. LAC-HYDRIN [Suspect]
     Route: 061
  2. PAIN MEDICATIONS [Interacting]

REACTIONS (2)
  - DRUG INTERACTION [None]
  - MYALGIA [None]
